FAERS Safety Report 25625897 (Version 1)
Quarter: 2025Q3

REPORT INFORMATION
  Report Type: Spontaneous
  Country: CN (occurrence: CN)
  Receive Date: 20250731
  Receipt Date: 20250731
  Transmission Date: 20251021
  Serious: Yes (Hospitalization)
  Sender: ACCORD
  Company Number: None

PATIENT
  Age: 55 Year
  Sex: Female
  Weight: 62 kg

DRUGS (1)
  1. TRASTUZUMAB [Suspect]
     Active Substance: TRASTUZUMAB
     Indication: Breast cancer
     Dosage: 300 MILLIGRAM, Q3W, IV DRIP, STRENGTH: 150 MG
     Dates: start: 20250316, end: 20250413

REACTIONS (7)
  - Bicytopenia [Recovering/Resolving]
  - Joint range of motion decreased [Unknown]
  - Cancer pain [Unknown]
  - Gastrointestinal disorder [Unknown]
  - Asthenia [Unknown]
  - Dyspnoea [Unknown]
  - Weight decreased [Unknown]

NARRATIVE: CASE EVENT DATE: 20250508
